FAERS Safety Report 23335475 (Version 1)
Quarter: 2023Q4

REPORT INFORMATION
  Report Type: Spontaneous
  Country: JP (occurrence: JP)
  Receive Date: 20231225
  Receipt Date: 20231225
  Transmission Date: 20240110
  Serious: Yes (Hospitalization)
  Sender: FDA-Public Use
  Company Number: JP-CHUGAI-2023044992

PATIENT
  Sex: Male

DRUGS (1)
  1. EVRYSDI [Suspect]
     Active Substance: RISDIPLAM
     Indication: Spinal muscular atrophy
     Dosage: UNK
     Route: 065

REACTIONS (1)
  - Infection [Recovering/Resolving]

NARRATIVE: CASE EVENT DATE: 20231206
